FAERS Safety Report 15458914 (Version 1)
Quarter: 2018Q4

REPORT INFORMATION
  Report Type: Spontaneous
  Country: KR (occurrence: KR)
  Receive Date: 20181003
  Receipt Date: 20181003
  Transmission Date: 20190204
  Serious: Yes (Hospitalization)
  Sender: FDA-Public Use
  Company Number: KR-MYLANLABS-2018M1070145

PATIENT
  Age: 49 Year
  Sex: Female

DRUGS (2)
  1. VENLAFAXINE [Suspect]
     Active Substance: VENLAFAXINE HYDROCHLORIDE
     Indication: DEPRESSION
     Dosage: 1 DF, QD/FOR 4 MONTHS PRIOR TO OVERDOSE
     Route: 048
  2. VENLAFAXINE [Suspect]
     Active Substance: VENLAFAXINE HYDROCHLORIDE
     Dosage: 40 DF, TOTAL DOSE: 3G
     Route: 048

REACTIONS (10)
  - Mydriasis [Recovered/Resolved]
  - Muscle necrosis [Unknown]
  - Body temperature decreased [Recovered/Resolved]
  - Electrocardiogram QT prolonged [Recovered/Resolved]
  - Compartment syndrome [Unknown]
  - Intentional overdose [Unknown]
  - Rhabdomyolysis [Recovering/Resolving]
  - Blood pressure decreased [Recovered/Resolved]
  - Sciatic nerve neuropathy [Unknown]
  - Suicide attempt [Unknown]
